FAERS Safety Report 8202716-8 (Version None)
Quarter: 2012Q1

REPORT INFORMATION
  Report Type: 
  Country: None (occurrence: None)
  Receive Date: 20120312
  Receipt Date: 20120301
  Transmission Date: 20120608
  Serious: Yes (Hospitalization)
  Sender: FDA-Public Use
  Company Number: US-NOVOPROD-343101

PATIENT
  Age: 56 Year
  Sex: Male
  Weight: 120 kg

DRUGS (2)
  1. LIRAGLUTIDE FLEXPEN [Suspect]
     Indication: TYPE 2 DIABETES MELLITUS
     Dosage: 1.8 MG, QD
     Route: 058
     Dates: start: 20101119
  2. PLAVIX [Concomitant]

REACTIONS (2)
  - ANGINA UNSTABLE [None]
  - CORONARY REVASCULARISATION [None]
